FAERS Safety Report 5524916-8 (Version None)
Quarter: 2007Q4

REPORT INFORMATION
  Report Type: 
  Country: None (occurrence: None)
  Receive Date: 20071119
  Receipt Date: 20071102
  Transmission Date: 20080405
  Serious: Yes (Hospitalization)
  Sender: FDA-Public Use
  Company Number: 2007-166987-NL

PATIENT
  Age: 86 Year
  Sex: Male

DRUGS (6)
  1. NANDROLONE DECANOATE [Suspect]
     Indication: ANAEMIA
     Dates: start: 20071019, end: 20071019
  2. ACETAMINOPHEN [Suspect]
     Indication: PAIN
     Dosage: ORAL, 2-4 TABLETS OVER 2 DAYS
     Route: 048
     Dates: start: 20071020, end: 20071022
  3. CODEINE SUL TAB [Suspect]
     Dosage: ORAL, 2-4 TABLETS OVER 2 DAYS
     Route: 048
     Dates: start: 20071020, end: 20071022
  4. PERCOCET [Suspect]
     Indication: PAIN
     Dosage: ORAL, 1 TABLET
     Route: 048
     Dates: start: 20071020, end: 20071022
  5. IBUPROFEN [Suspect]
     Indication: PAIN
     Dosage: ORAL, 4-6 TABLETS OVER 2 DAYS
     Route: 048
     Dates: start: 20071020, end: 20071022
  6. ASCORBIC ACID [Concomitant]

REACTIONS (7)
  - CONDITION AGGRAVATED [None]
  - DRUG DISPENSING ERROR [None]
  - HYPONATRAEMIA [None]
  - INJECTION SITE BRUISING [None]
  - METASTATIC PAIN [None]
  - SCAB [None]
  - SKIN EXFOLIATION [None]
